FAERS Safety Report 7971927-9 (Version None)
Quarter: 2011Q4

REPORT INFORMATION
  Report Type: 
  Country: None (occurrence: None)
  Receive Date: 20111212
  Receipt Date: 20111205
  Transmission Date: 20120403
  Serious: Yes (Hospitalization)
  Sender: FDA-Public Use
  Company Number: PHHY2010CN20732

PATIENT
  Sex: Female
  Weight: 63 kg

DRUGS (3)
  1. GLEEVEC [Suspect]
     Indication: CHRONIC MYELOID LEUKAEMIA
     Dosage: 400 MG, QD
     Dates: start: 20090422
  2. GLEEVEC [Suspect]
     Dosage: 300 MG, QD
  3. GLEEVEC [Suspect]
     Dosage: 400 MG, QD
     Dates: end: 20100217

REACTIONS (1)
  - AGRANULOCYTOSIS [None]
